FAERS Safety Report 20383659 (Version 1)
Quarter: 2022Q1

REPORT INFORMATION
  Report Type: Spontaneous
  Country: US (occurrence: None)
  Receive Date: 20220127
  Receipt Date: 20220127
  Transmission Date: 20220423
  Serious: No
  Sender: FDA-Public Use
  Company Number: None

PATIENT
  Age: 54 Year
  Sex: Female
  Weight: 117 kg

DRUGS (2)
  1. TALTZ [Suspect]
     Active Substance: IXEKIZUMAB
     Indication: Ankylosing spondylitis
  2. TALTZ [Suspect]
     Active Substance: IXEKIZUMAB
     Indication: Rheumatoid arthritis

REACTIONS (7)
  - Aphonia [None]
  - Urticaria [None]
  - Oropharyngeal pain [None]
  - Sneezing [None]
  - Wheezing [None]
  - Vomiting [None]
  - Skin laceration [None]

NARRATIVE: CASE EVENT DATE: 20220116
